FAERS Safety Report 6233728-1 (Version None)
Quarter: 2009Q2

REPORT INFORMATION
  Report Type: 
  Country: None (occurrence: None)
  Receive Date: 20090617
  Receipt Date: 20090611
  Transmission Date: 20091009
  Serious: Yes (Death, Hospitalization, Other)
  Sender: FDA-Public Use
  Company Number: GB-ELI_LILLY_AND_COMPANY-GB200811000727

PATIENT
  Sex: Male
  Weight: 54.785 kg

DRUGS (6)
  1. BYETTA [Suspect]
     Indication: TYPE 2 DIABETES MELLITUS
     Dosage: 5 UG, 2/D
     Route: 058
     Dates: start: 20080108, end: 20080916
  2. BYETTA [Suspect]
     Dosage: 10 UG, 2/D
     Route: 058
     Dates: start: 20090205
  3. INSULIN MIXTARD /00646001/ [Concomitant]
     Dosage: 60 U, OTHER
     Dates: start: 20080916, end: 20090521
  4. TEICOPLANIN [Concomitant]
     Indication: DIFFUSE LARGE B-CELL LYMPHOMA
     Dates: start: 20090225, end: 20090228
  5. RITUXIMAB [Concomitant]
     Route: 042
     Dates: start: 20081031
  6. DOXORUBICIN HCL [Concomitant]
     Route: 042
     Dates: start: 20081031

REACTIONS (4)
  - DIABETES MELLITUS INADEQUATE CONTROL [None]
  - DIFFUSE LARGE B-CELL LYMPHOMA [None]
  - ROAD TRAFFIC ACCIDENT [None]
  - WEIGHT DECREASED [None]
